FAERS Safety Report 24144707 (Version 1)
Quarter: 2024Q3

REPORT INFORMATION
  Report Type: Report from Study
  Country: US (occurrence: US)
  Receive Date: 20240728
  Receipt Date: 20240728
  Transmission Date: 20241016
  Serious: Yes (Other)
  Sender: ABBVIE
  Company Number: US-ABBVIE-5853726

PATIENT
  Sex: Female

DRUGS (2)
  1. VENCLEXTA [Suspect]
     Active Substance: VENETOCLAX
     Indication: Acute myeloid leukaemia
     Dosage: STRENGTH : 100 MG?TAKE 2 TABLETS BY MOUTH ONCE DAILY WITH FOOD AND A FULL GLASS?OF WATER
     Route: 048
     Dates: end: 2024
  2. AZACITIDINE [Concomitant]
     Active Substance: AZACITIDINE
     Indication: Product used for unknown indication

REACTIONS (2)
  - Stem cell transplant [Unknown]
  - Minimal residual disease [Unknown]

NARRATIVE: CASE EVENT DATE: 20240101
